FAERS Safety Report 19817177 (Version 1)
Quarter: 2021Q3

REPORT INFORMATION
  Report Type: Spontaneous
  Country: US (occurrence: US)
  Receive Date: 20210910
  Receipt Date: 20210910
  Transmission Date: 20211014
  Serious: No
  Sender: FDA-Public Use
  Company Number: US-MYLANLABS-2021M1052327

PATIENT
  Sex: Female
  Weight: 44 kg

DRUGS (1)
  1. NORETHINDRONE TABLETS, USP [Suspect]
     Active Substance: NORETHINDRONE
     Indication: HAEMORRHAGIC DISORDER
     Dosage: 0.35 MILLIGRAM, QD
     Route: 048
     Dates: start: 20210812

REACTIONS (2)
  - Off label use [Unknown]
  - Expired product administered [Unknown]
